FAERS Safety Report 20716724 (Version 1)
Quarter: 2022Q2

REPORT INFORMATION
  Report Type: Report from Study
  Country: US (occurrence: US)
  Receive Date: 20220416
  Receipt Date: 20220416
  Transmission Date: 20220720
  Serious: Yes (Other)
  Sender: FDA-Public Use
  Company Number: US-BRISTOL-MYERS SQUIBB COMPANY-2022-017411

PATIENT
  Age: 56 Year
  Sex: Female
  Weight: 104.3 kg

DRUGS (3)
  1. REVLIMID [Suspect]
     Active Substance: LENALIDOMIDE
     Indication: Myelodysplastic syndrome
     Dosage: FOR 21 DAYS
     Route: 048
     Dates: start: 20211016
  2. REVLIMID [Suspect]
     Active Substance: LENALIDOMIDE
     Dosage: OF 28 DAY CYCLE
     Route: 065
  3. ASPIRIN [Concomitant]
     Active Substance: ASPIRIN
     Indication: Product used for unknown indication

REACTIONS (2)
  - Peripheral swelling [Unknown]
  - Renal impairment [Unknown]
